FAERS Safety Report 24938953 (Version 4)
Quarter: 2025Q2

REPORT INFORMATION
  Report Type: Spontaneous
  Country: US (occurrence: US)
  Receive Date: 20250206
  Receipt Date: 20250402
  Transmission Date: 20250717
  Serious: Yes (Death, Hospitalization)
  Sender: CALLIDITAS THERAPEUTICS
  Company Number: US-Calliditas-2025CAL00302

PATIENT
  Age: 77 Year
  Sex: Male

DRUGS (21)
  1. TARPEYO [Suspect]
     Active Substance: BUDESONIDE
     Indication: IgA nephropathy
     Dosage: TAKE 4 CAPSULES (16 MG) BY MOUTH ONCE DAILY IN THE MORNING 1 HOUR BEFORE A MEAL
     Route: 048
     Dates: start: 20241005
  2. METOPROLOL [Concomitant]
     Active Substance: METOPROLOL
  3. RANOLAZINE [Concomitant]
     Active Substance: RANOLAZINE
  4. TORSEMIDE [Concomitant]
     Active Substance: TORSEMIDE
  5. SODIUM BICARBONATE [Concomitant]
     Active Substance: SODIUM BICARBONATE
  6. VITAMIN D3 [Concomitant]
     Active Substance: CHOLECALCIFEROL
  7. AMLODIPINE [Concomitant]
     Active Substance: AMLODIPINE BESYLATE
  8. ASPIRIN [Concomitant]
     Active Substance: ASPIRIN
  9. CALCIUM [Concomitant]
     Active Substance: CALCIUM
  10. CLARITIN [Concomitant]
     Active Substance: LORATADINE
  11. ELIQUIS [Concomitant]
     Active Substance: APIXABAN
  12. FUROSEMIDE [Concomitant]
     Active Substance: FUROSEMIDE
  13. ISOSORBIDE MONONITRATE [Concomitant]
     Active Substance: ISOSORBIDE MONONITRATE
  14. JARDIANCE [Concomitant]
     Active Substance: EMPAGLIFLOZIN
  15. LEVOTHYROXINE [Concomitant]
     Active Substance: LEVOTHYROXINE
  16. LIPITOR [Concomitant]
     Active Substance: ATORVASTATIN CALCIUM
  17. LOSARTAN [Concomitant]
     Active Substance: LOSARTAN
  18. PANTOPRAZOLE [Concomitant]
     Active Substance: PANTOPRAZOLE
  19. PLAVIX [Concomitant]
     Active Substance: CLOPIDOGREL BISULFATE
  20. POTASSIUM CHLORIDE [Concomitant]
     Active Substance: POTASSIUM CHLORIDE
  21. PREDNISONE [Concomitant]
     Active Substance: PREDNISONE

REACTIONS (7)
  - Cardiac arrest [Fatal]
  - Accidental overdose [Recovering/Resolving]
  - Underdose [Unknown]
  - Pneumonia [Unknown]
  - Acute respiratory failure [Unknown]
  - Acute myocardial infarction [Unknown]
  - Dyspnoea [Unknown]

NARRATIVE: CASE EVENT DATE: 20250203
